FAERS Safety Report 10931690 (Version 1)
Quarter: 2015Q1

REPORT INFORMATION
  Report Type: Report from Study
  Country: US (occurrence: US)
  Receive Date: 20150319
  Receipt Date: 20150319
  Transmission Date: 20150721
  Serious: Yes (Other)
  Sender: FDA-Public Use
  Company Number: US-GILEAD-2015-0142006

PATIENT
  Age: 54 Year
  Sex: Female

DRUGS (2)
  1. AZTREONAM LYSINE [Suspect]
     Active Substance: AZTREONAM LYSINE
     Dosage: 75 UNK, UNK
     Route: 055
  2. AZTREONAM LYSINE [Suspect]
     Active Substance: AZTREONAM LYSINE
     Indication: PRODUCT USED FOR UNKNOWN INDICATION
     Dosage: 75 MG, UNK
     Route: 055
     Dates: start: 20101210

REACTIONS (7)
  - Treatment noncompliance [Unknown]
  - Product package associated injury [Unknown]
  - Pneumonia [Recovered/Resolved]
  - Product container issue [Unknown]
  - Frustration [Unknown]
  - Unevaluable event [Unknown]
  - Product container seal issue [Unknown]
